FAERS Safety Report 18464342 (Version 3)
Quarter: 2020Q4

REPORT INFORMATION
  Report Type: Report from Study
  Country: GB (occurrence: GB)
  Receive Date: 20201104
  Receipt Date: 20201127
  Transmission Date: 20210114
  Serious: Yes (Other)
  Sender: FDA-Public Use
  Company Number: GB-JNJFOC-20201051408

PATIENT
  Age: 6 Decade
  Sex: Female

DRUGS (5)
  1. STELARA [Suspect]
     Active Substance: USTEKINUMAB
     Indication: CROHN^S DISEASE
     Dosage: 8 WEEKS AFTER INDUCTION
     Route: 058
     Dates: start: 20200923
  2. STELARA [Suspect]
     Active Substance: USTEKINUMAB
  3. BUDESONIDE. [Concomitant]
     Active Substance: BUDESONIDE
  4. ADCAL                              /00056901/ [Concomitant]
     Active Substance: CARBAZOCHROME
  5. OMEPRAZOLE. [Concomitant]
     Active Substance: OMEPRAZOLE

REACTIONS (5)
  - Sjogren^s syndrome [Unknown]
  - Liver function test abnormal [Unknown]
  - Transient ischaemic attack [Unknown]
  - Gastrointestinal disorder [Recovering/Resolving]
  - Blood pressure increased [Unknown]
